FAERS Safety Report 8580557-X (Version None)
Quarter: 2012Q3

REPORT INFORMATION
  Report Type: 
  Country: None (occurrence: None)
  Receive Date: 20120808
  Receipt Date: 20120724
  Transmission Date: 20120928
  Serious: Yes (Other)
  Sender: FDA-Public Use
  Company Number: CHPA2012US016821

PATIENT
  Age: 58 Year
  Sex: Female

DRUGS (1)
  1. BENEFIBER W/ WHEAT DEXTRIN [Suspect]
     Indication: PROPHYLAXIS
     Dosage: 2 TSP, 2 TO 3 TIMES PER DAY
     Route: 048
     Dates: start: 20100101

REACTIONS (3)
  - THERAPEUTIC RESPONSE UNEXPECTED [None]
  - POLYP [None]
  - OFF LABEL USE [None]
